FAERS Safety Report 16687923 (Version 1)
Quarter: 2019Q4

REPORT INFORMATION
  Report Type: Spontaneous
  Country: US (occurrence: US)
  Receive Date: 20190808
  Receipt Date: 20190808
  Transmission Date: 20200122
  Serious: Yes (Hospitalization)
  Sender: FDA-Public Use
  Company Number: None

PATIENT
  Age: 67 Year
  Sex: Female
  Weight: 106.2 kg

DRUGS (9)
  1. CPAP [Concomitant]
     Active Substance: DEVICE
  2. MAGNESIUM OXIDE. [Concomitant]
     Active Substance: MAGNESIUM OXIDE
  3. NITROFURANTOIN MONOHYDRATE MACROCRYSTALS [Suspect]
     Active Substance: NITROFURANTOIN\NITROFURANTOIN MONOHYDRATE
     Indication: URINARY TRACT INFECTION
     Dosage: ?          QUANTITY:14 CAPSULE(S);?
     Route: 048
     Dates: start: 20190719, end: 20190726
  4. DHEA [Concomitant]
     Active Substance: PRASTERONE
  5. DIM [Concomitant]
  6. EFFEXOR XR [Concomitant]
     Active Substance: VENLAFAXINE HYDROCHLORIDE
  7. FISH OIL [Concomitant]
     Active Substance: FISH OIL
  8. LISINOPRIL. [Concomitant]
     Active Substance: LISINOPRIL
  9. PRILOSEC [Concomitant]
     Active Substance: OMEPRAZOLE MAGNESIUM

REACTIONS (10)
  - Dizziness [None]
  - Hypersomnia [None]
  - Nausea [None]
  - Asthenia [None]
  - Pancreatitis [None]
  - Renal pain [None]
  - Blood glucose increased [None]
  - Decreased appetite [None]
  - Product dose omission [None]
  - Dysuria [None]

NARRATIVE: CASE EVENT DATE: 20190802
